FAERS Safety Report 6025014-X (Version None)
Quarter: 2008Q4

REPORT INFORMATION
  Report Type: 
  Country: None (occurrence: None)
  Receive Date: 20081224
  Receipt Date: 20081216
  Transmission Date: 20090506
  Serious: Yes (Other)
  Sender: FDA-Public Use
  Company Number: 2008-04497

PATIENT
  Age: 59 Year
  Sex: Female
  Weight: 55 kg

DRUGS (7)
  1. VELCADE [Suspect]
     Indication: MULTIPLE MYELOMA
     Dosage: 1.3 MG/M2, INTRAVENOUS
     Route: 042
     Dates: start: 20080829, end: 20081111
  2. DEXAMETHASONE [Concomitant]
  3. MOVICOL (SODIUM BICARBONATE, SODIUM CHLORIDE MACROGOL, POTASSIUM CHLOR [Concomitant]
  4. DOMPERIDONE (DOMPERIDONE) [Concomitant]
  5. OMEPRAZOLE [Concomitant]
  6. SULFAMETHOXAZOLE AND TRIMETHOPRIM [Concomitant]
  7. CODEINE SUL TAB [Concomitant]

REACTIONS (9)
  - ASTHENIA [None]
  - BACK PAIN [None]
  - DIARRHOEA [None]
  - DIZZINESS [None]
  - FALL [None]
  - INSOMNIA [None]
  - MALAISE [None]
  - MUSCLE SPASMS [None]
  - PAIN IN EXTREMITY [None]
